FAERS Safety Report 6230454-X (Version None)
Quarter: 2009Q2

REPORT INFORMATION
  Report Type: 
  Country: None (occurrence: None)
  Receive Date: 20090615
  Receipt Date: 20090420
  Transmission Date: 20091009
  Serious: No
  Sender: FDA-Public Use
  Company Number: US-ABBOTT-09P-163-0569293-00

PATIENT
  Sex: Male
  Weight: 81.72 kg

DRUGS (4)
  1. TRILIPIX [Suspect]
     Indication: BLOOD CHOLESTEROL INCREASED
     Route: 048
     Dates: start: 20081201, end: 20090101
  2. ASPIRIN [Concomitant]
     Indication: DRUG USE FOR UNKNOWN INDICATION
  3. ALBUTEROL [Concomitant]
     Indication: ASTHMA
     Dosage: INHALER
     Route: 055
  4. VITAMIN D [Concomitant]
     Indication: VITAMIN D DEFICIENCY
     Route: 048

REACTIONS (4)
  - ARTHRALGIA [None]
  - MUSCULOSKELETAL PAIN [None]
  - MUSCULOSKELETAL STIFFNESS [None]
  - PAIN IN EXTREMITY [None]
